FAERS Safety Report 5565912-4 (Version None)
Quarter: 2007Q4

REPORT INFORMATION
  Report Type: 
  Country: None (occurrence: None)
  Receive Date: 20071213
  Receipt Date: 20071206
  Transmission Date: 20080405
  Serious: Yes (Hospitalization, Disabling, Other)
  Sender: FDA-Public Use
  Company Number: 164844ISR

PATIENT
  Age: 28 Year
  Sex: Female

DRUGS (1)
  1. AMITRIPTLINE HCL [Suspect]
     Dosage: ORAL
     Route: 048
     Dates: start: 20071001, end: 20071101

REACTIONS (1)
  - DERMATITIS EXFOLIATIVE [None]
